FAERS Safety Report 7333349-3 (Version None)
Quarter: 2011Q1

REPORT INFORMATION
  Report Type: 
  Country: None (occurrence: None)
  Receive Date: 20110304
  Receipt Date: 20110225
  Transmission Date: 20110831
  Serious: Yes (Other)
  Sender: FDA-Public Use
  Company Number: US-PFIZER INC-2011041969

PATIENT
  Sex: Female
  Weight: 124.72 kg

DRUGS (1)
  1. PRISTIQ [Suspect]
     Indication: DEPRESSION
     Dosage: 50 MG, FREQUENCY UNKNOWN
     Route: 048
     Dates: start: 20100701, end: 20100720

REACTIONS (8)
  - PALPITATIONS [None]
  - HYPERHIDROSIS [None]
  - TOOTH EXTRACTION [None]
  - CRYING [None]
  - INSOMNIA [None]
  - FEELING ABNORMAL [None]
  - ANXIETY [None]
  - DEPRESSED MOOD [None]
